FAERS Safety Report 11901982 (Version 1)
Quarter: 2016Q1

REPORT INFORMATION
  Report Type: Report from Study
  Country: US (occurrence: US)
  Receive Date: 20160108
  Receipt Date: 20160108
  Transmission Date: 20160526
  Serious: No
  Sender: FDA-Public Use
  Company Number: US-ABBVIE-15P-163-1512569-00

PATIENT
  Sex: Female

DRUGS (1)
  1. VIEKIRA PAK [Suspect]
     Active Substance: DASABUVIR\OMBITASVIR\PARITAPREVIR\RITONAVIR
     Indication: CHRONIC HEPATITIS C
     Dosage: 12.5MG/75MG/50MG, 2 TABLETS IN THE AM, DASABUVIR TABLETS 250 MG 1 TABLET
     Route: 048
     Dates: start: 20151109

REACTIONS (9)
  - Pruritus [Unknown]
  - Dyspepsia [Unknown]
  - Ear infection [Unknown]
  - Fatigue [Unknown]
  - Nausea [Unknown]
  - Dry mouth [Unknown]
  - Dizziness [Unknown]
  - Pain [Unknown]
  - Heart rate increased [Unknown]
